FAERS Safety Report 4620867-1 (Version None)
Quarter: 2005Q1

REPORT INFORMATION
  Report Type: 
  Country: None (occurrence: None)
  Receive Date: 20050325
  Receipt Date: 20050314
  Transmission Date: 20050727
  Serious: Yes (Other)
  Sender: FDA-Public Use
  Company Number: HQWYE106314MAR05

PATIENT
  Age: 73 Year
  Sex: Male

DRUGS (1)
  1. TAZOCIN (PIPERACILLIN/TAZOBACTAM) [Suspect]
     Indication: PYELONEPHRITIS
     Dosage: 5 G DAILY      INJECTION
     Route: 041
     Dates: start: 20040706, end: 20040708

REACTIONS (2)
  - HEPATIC FUNCTION ABNORMAL [None]
  - HEPATITIS C [None]
